FAERS Safety Report 22192316 (Version 1)
Quarter: 2023Q2

REPORT INFORMATION
  Report Type: Spontaneous
  Country: IT (occurrence: IT)
  Receive Date: 20230410
  Receipt Date: 20230410
  Transmission Date: 20230721
  Serious: Yes (Other)
  Sender: FDA-Public Use
  Company Number: IT-BAYER-2023A042760

PATIENT
  Age: 48 Year
  Sex: Female

DRUGS (1)
  1. DIENOGEST\ETHINYL ESTRADIOL [Suspect]
     Active Substance: DIENOGEST\ETHINYL ESTRADIOL
     Indication: Contraception
     Dosage: 1 DF, QD
     Route: 048

REACTIONS (2)
  - Joint dislocation [Recovering/Resolving]
  - Trigeminal nerve disorder [Recovering/Resolving]
